FAERS Safety Report 24771802 (Version 2)
Quarter: 2025Q1

REPORT INFORMATION
  Report Type: Spontaneous
  Country: GB (occurrence: GB)
  Receive Date: 20241224
  Receipt Date: 20250129
  Transmission Date: 20250409
  Serious: No
  Sender: DAIICHI
  Company Number: GB-DSJP-DS-2024-116528-GB

PATIENT
  Sex: Female

DRUGS (1)
  1. ENHERTU [Suspect]
     Active Substance: FAM-TRASTUZUMAB DERUXTECAN-NXKI
     Indication: Product used for unknown indication
     Route: 042

REACTIONS (2)
  - COVID-19 [Unknown]
  - Interstitial lung disease [Unknown]
